FAERS Safety Report 11626312 (Version 2)
Quarter: 2016Q3

REPORT INFORMATION
  Report Type: Report from Study
  Country: JP (occurrence: JP)
  Receive Date: 20151013
  Receipt Date: 20160802
  Transmission Date: 20161109
  Serious: No
  Sender: FDA-Public Use
  Company Number: JP-ASTRAZENECA-2015SE95774

PATIENT
  Age: 65 Year
  Sex: Male

DRUGS (24)
  1. AMARYL [Concomitant]
     Active Substance: GLIMEPIRIDE
     Indication: DIABETES MELLITUS
     Dosage: NUMBER OF SEPARATE DOSAGES UNKNOWN3.0MG UNKNOWN
     Route: 065
     Dates: start: 200607, end: 20150425
  2. NOVORAPID [Concomitant]
     Active Substance: INSULIN ASPART
     Indication: DIABETES MELLITUS
     Dosage: NUMBER OF SEPARATE DOSAGES UNKNOWN12.0IU UNKNOWN
     Route: 065
     Dates: start: 20150430, end: 20150508
  3. TAKEPRON [Concomitant]
     Active Substance: LANSOPRAZOLE
     Dosage: NUMBER OF SEPARATE DOSAGES UNKNOWN30.0MG UNKNOWN
     Route: 065
     Dates: start: 20150428
  4. CRESTOR [Suspect]
     Active Substance: ROSUVASTATIN CALCIUM
     Indication: HYPERCHOLESTEROLAEMIA
     Route: 048
     Dates: start: 20150714
  5. METGLUCO [Suspect]
     Active Substance: METFORMIN HYDROCHLORIDE
     Indication: DIABETES MELLITUS
     Dosage: NON AZ PRODUCT500.0MG UNKNOWN
     Route: 065
     Dates: start: 20150217, end: 20150314
  6. AMARYL [Concomitant]
     Active Substance: GLIMEPIRIDE
     Indication: DIABETES MELLITUS
     Dosage: NUMBER OF SEPARATE DOSAGES UNKNOWN2.0MG UNKNOWN
     Route: 065
     Dates: start: 20150426, end: 20150428
  7. NOVORAPID [Concomitant]
     Active Substance: INSULIN ASPART
     Indication: DIABETES MELLITUS
     Dosage: NUMBER OF SEPARATE DOSAGES UNKNOWN12.0IU UNKNOWN
     Route: 065
     Dates: start: 20150509
  8. MICARDIS [Concomitant]
     Active Substance: TELMISARTAN
     Indication: HYPERTENSION
     Dosage: NUMBER OF SEPARATE DOSAGES UNKNOWN40.0MG UNKNOWN
     Route: 065
     Dates: start: 20100817, end: 20150428
  9. MICAMLO [Concomitant]
     Active Substance: AMLODIPINE BESYLATE\TELMISARTAN
     Indication: HYPERTENSION
     Dosage: NUMBER OF SEPARATE DOSAGES UNKNOWN45.0MG UNKNOWN
     Route: 065
     Dates: start: 20110901
  10. FLIVAS OD [Concomitant]
     Dosage: NUMBER OF SEPARATE DOSAGES UNKNOWN75.0MG UNKNOWN
     Route: 065
     Dates: start: 20110901, end: 20120517
  11. LANTUS [Concomitant]
     Active Substance: INSULIN GLARGINE
     Indication: DIABETES MELLITUS
     Dosage: NUMBER OF SEPARATE DOSAGES UNKNOWN4.0IU UNKNOWN
     Route: 065
     Dates: start: 20150503, end: 20150508
  12. SUREPOST [Concomitant]
     Active Substance: REPAGLINIDE
     Indication: DIABETES MELLITUS
     Dosage: NUMBER OF SEPARATE DOSAGES UNKNOWN1.5MG UNKNOWN
     Route: 065
     Dates: start: 20150514
  13. PARIET [Concomitant]
     Active Substance: RABEPRAZOLE SODIUM
     Dosage: NUMBER OF SEPARATE DOSAGES UNKNOWN20.0MG UNKNOWN
     Route: 048
     Dates: start: 20120308, end: 20120731
  14. JANUVIA [Concomitant]
     Active Substance: SITAGLIPTIN PHOSPHATE
     Indication: DIABETES MELLITUS
     Dosage: NUMBER OF SEPARATE DOSAGES UNKNOWN100.0MG UNKNOWN
     Route: 065
     Dates: start: 20111101
  15. PLETAAL OD [Concomitant]
     Active Substance: CILOSTAZOL
     Dosage: NUMBER OF SEPARATE DOSAGES UNKNOWN200.0MG UNKNOWN
     Route: 065
     Dates: start: 20120904, end: 20121008
  16. PLETAAL OD [Concomitant]
     Active Substance: CILOSTAZOL
     Dosage: NUMBER OF SEPARATE DOSAGES UNKNOWN100.0MG UNKNOWN
     Route: 065
     Dates: start: 20121009
  17. CRESTOR [Suspect]
     Active Substance: ROSUVASTATIN CALCIUM
     Indication: HYPERCHOLESTEROLAEMIA
     Route: 048
     Dates: start: 20120308, end: 20150423
  18. AMOBAN [Concomitant]
     Active Substance: ZOPICLONE
     Dosage: NUMBER OF SEPARATE DOSAGES UNKNOWN10.0MG UNKNOWN
     Route: 065
     Dates: start: 20110901, end: 20120517
  19. LUDIOMIL [Concomitant]
     Active Substance: MAPROTILINE HYDROCHLORIDE
     Dosage: NUMBER OF SEPARATE DOSAGES UNKNOWN10.0MG UNKNOWN
     Route: 065
     Dates: start: 20111208, end: 20120517
  20. PARIET [Concomitant]
     Active Substance: RABEPRAZOLE SODIUM
     Dosage: NUMBER OF SEPARATE DOSAGES UNKNOWN10.0MG UNKNOWN
     Route: 048
     Dates: start: 20120731
  21. EQUA [Concomitant]
     Active Substance: VILDAGLIPTIN
     Indication: DIABETES MELLITUS
     Dosage: NUMBER OF SEPARATE DOSAGES UNKNOWN100.0MG UNKNOWN
     Route: 065
     Dates: start: 20150426, end: 20150428
  22. NATRIX [Concomitant]
     Active Substance: INDAPAMIDE
     Indication: HYPERTENSION
     Dosage: NUMBER OF SEPARATE DOSAGES UNKNOWN1.0MG UNKNOWN
     Route: 065
     Dates: start: 20141014, end: 20150423
  23. SUINY [Concomitant]
     Active Substance: ANAGLIPTIN
     Indication: DIABETES MELLITUS
     Dosage: NUMBER OF SEPARATE DOSAGES UNKNOWN200.0MG UNKNOWN
     Route: 065
     Dates: start: 20140107, end: 20150428
  24. MICARDIS [Concomitant]
     Active Substance: TELMISARTAN
     Indication: HYPERTENSION
     Dosage: NUMBER OF SEPARATE DOSAGES UNKNOWN20.0MG UNKNOWN
     Route: 065
     Dates: start: 20150429

REACTIONS (5)
  - Tachycardia [Recovered/Resolved]
  - Liver function test increased [Recovered/Resolved]
  - Intermittent claudication [Recovering/Resolving]
  - Eosinophil count increased [Recovering/Resolving]
  - Blood immunoglobulin E increased [Not Recovered/Not Resolved]

NARRATIVE: CASE EVENT DATE: 201205
